FAERS Safety Report 7076799-5 (Version None)
Quarter: 2010Q4

REPORT INFORMATION
  Report Type: 
  Country: None (occurrence: None)
  Receive Date: 20101101
  Receipt Date: 20101027
  Transmission Date: 20110411
  Serious: Yes (Death)
  Sender: FDA-Public Use
  Company Number: ES-WYE-G06875810

PATIENT
  Age: 57 Year
  Sex: Male

DRUGS (3)
  1. TEMSIROLIMUS [Suspect]
     Dosage: UNKNOWN
     Dates: start: 20100204, end: 20100225
  2. SUTENT [Suspect]
     Dosage: 25 MG
     Dates: start: 20100610, end: 20100623
  3. SUTENT [Suspect]
     Dosage: 50 MG
     Dates: start: 20100624, end: 20100716

REACTIONS (2)
  - CARDIAC ARREST [None]
  - CARDIOTOXICITY [None]
